FAERS Safety Report 20536745 (Version 1)
Quarter: 2022Q1

REPORT INFORMATION
  Report Type: Spontaneous
  Country: CN (occurrence: CN)
  Receive Date: 20220302
  Receipt Date: 20220302
  Transmission Date: 20220424
  Serious: Yes (Life-Threatening)
  Sender: FDA-Public Use
  Company Number: CN-JNJFOC-20211109511

PATIENT
  Age: 82 Year
  Sex: Female
  Weight: 39.4 kg

DRUGS (5)
  1. FENTANYL [Suspect]
     Active Substance: FENTANYL
     Indication: Analgesic therapy
     Dosage: ONE PATCH
     Route: 062
     Dates: start: 20201215, end: 20210211
  2. FENTANYL [Suspect]
     Active Substance: FENTANYL
     Dosage: 2 PATCHES
     Route: 062
     Dates: start: 20210211, end: 20210304
  3. FENTANYL [Suspect]
     Active Substance: FENTANYL
     Dosage: 3 PATCHES
     Route: 062
     Dates: start: 20210304, end: 20210409
  4. FENTANYL [Suspect]
     Active Substance: FENTANYL
     Dosage: ONE PATCH
     Route: 062
     Dates: start: 20210412, end: 20210601
  5. FENTANYL [Suspect]
     Active Substance: FENTANYL
     Dosage: TWO PATCHES
     Route: 062
     Dates: start: 20210601, end: 20210610

REACTIONS (1)
  - Loss of consciousness [Recovered/Resolved]

NARRATIVE: CASE EVENT DATE: 20210408
